FAERS Safety Report 7766512-8 (Version None)
Quarter: 2011Q3

REPORT INFORMATION
  Report Type: 
  Country: None (occurrence: None)
  Receive Date: 20110922
  Receipt Date: 20110915
  Transmission Date: 20111222
  Serious: No
  Sender: FDA-Public Use
  Company Number: US-BIOGENIDEC-2011BI035684

PATIENT
  Age: 35 Year
  Sex: Female

DRUGS (2)
  1. TYSABRI [Suspect]
     Indication: MULTIPLE SCLEROSIS
     Route: 042
     Dates: start: 20110713
  2. ZOLOFT [Concomitant]
     Indication: ANXIETY
     Dates: start: 20100101

REACTIONS (4)
  - PAIN IN EXTREMITY [None]
  - HEADACHE [None]
  - DYSPNOEA [None]
  - CHEST PAIN [None]
